FAERS Safety Report 21620119 (Version 1)
Quarter: 2022Q4

REPORT INFORMATION
  Report Type: Spontaneous
  Country: US (occurrence: US)
  Receive Date: 20221121
  Receipt Date: 20221121
  Transmission Date: 20230112
  Serious: Yes (Other)
  Sender: FDA-Public Use
  Company Number: US-GLENMARK PHARMACEUTICALS-2022GMK072218

PATIENT

DRUGS (3)
  1. ZONISAMIDE [Suspect]
     Active Substance: ZONISAMIDE
     Indication: Epilepsy
     Dosage: 2 DOSAGE FORM, BID (2 CAPSULES AT BREAKFAST, 2 CAPSULES AT BEDTIME)
     Route: 048
  2. DILANTIN [Concomitant]
     Active Substance: PHENYTOIN
     Indication: Epilepsy
     Dosage: ODD DAYS = 3 CAPSULES A DAY, EVEN DAYS = 4 CAPSULES A DAY
     Route: 048
  3. PRIMIDONE [Concomitant]
     Active Substance: PRIMIDONE
     Indication: Epilepsy
     Dosage: 1 DOSAGE FORM, HS (AT BED TIME)
     Route: 048

REACTIONS (1)
  - Seizure [Recovered/Resolved]

NARRATIVE: CASE EVENT DATE: 20220401
